FAERS Safety Report 5735694-1 (Version None)
Quarter: 2008Q2

REPORT INFORMATION
  Report Type: 
  Country: None (occurrence: None)
  Receive Date: 20080512
  Receipt Date: 20080507
  Transmission Date: 20081010
  Serious: Yes (Hospitalization)
  Sender: FDA-Public Use
  Company Number: US-MERCK-0804USA01363

PATIENT
  Age: 39 Year
  Sex: Female

DRUGS (6)
  1. SINGULAIR [Suspect]
     Indication: ASTHMA
     Route: 048
     Dates: start: 20040304, end: 20080401
  2. [THERAPY UNSPECIFIED] [Concomitant]
  3. EFFEXOR [Concomitant]
     Route: 065
     Dates: start: 20050201
  4. WELLBUTRIN [Concomitant]
     Route: 065
  5. PROZAC [Concomitant]
     Route: 065
  6. LAMICTAL [Concomitant]
     Route: 065

REACTIONS (3)
  - DEPRESSION [None]
  - MIGRAINE [None]
  - SUICIDE ATTEMPT [None]
